FAERS Safety Report 19301001 (Version 1)
Quarter: 2021Q2

REPORT INFORMATION
  Report Type: Report from Study
  Country: US (occurrence: US)
  Receive Date: 20210525
  Receipt Date: 20210525
  Transmission Date: 20210717
  Serious: Yes (Death, Other)
  Sender: FDA-Public Use
  Company Number: US-SUN PHARMACEUTICAL INDUSTRIES LTD-2021R1-297848

PATIENT
  Age: 78 Year
  Sex: Male

DRUGS (4)
  1. QUININE [Suspect]
     Active Substance: QUININE
     Indication: CEREBRAL MALARIA
     Route: 048
  2. QUINIDINE [Suspect]
     Active Substance: QUINIDINE
     Indication: CEREBRAL MALARIA
     Route: 042
  3. DOXYCYCLINE. [Suspect]
     Active Substance: DOXYCYCLINE
     Indication: CEREBRAL MALARIA
     Route: 065
  4. ATOVAQUONE?PROGUANIL [Suspect]
     Active Substance: ATOVAQUONE\PROGUANIL HYDROCHLORIDE
     Indication: CEREBRAL MALARIA
     Route: 048

REACTIONS (1)
  - Drug ineffective [Fatal]
